FAERS Safety Report 17203964 (Version 1)
Quarter: 2019Q4

REPORT INFORMATION
  Report Type: Spontaneous
  Country: AR (occurrence: AR)
  Receive Date: 20191226
  Receipt Date: 20191226
  Transmission Date: 20200122
  Serious: Yes (Other)
  Sender: FDA-Public Use
  Company Number: AR-BAYER-2019-234985

PATIENT
  Age: 66 Year
  Sex: Female

DRUGS (2)
  1. NEXAVAR [Suspect]
     Active Substance: SORAFENIB
     Indication: HEPATOCELLULAR CARCINOMA
     Dosage: 400 MG QD
     Dates: start: 20181110, end: 20181120
  2. NEXAVAR [Suspect]
     Active Substance: SORAFENIB
     Indication: HEPATOCELLULAR CARCINOMA
     Dosage: 800 MG, QD
     Dates: start: 20181015, end: 20181109

REACTIONS (6)
  - Decreased appetite [None]
  - Palmar-plantar erythrodysaesthesia syndrome [None]
  - Eastern Cooperative Oncology Group performance status worsened [None]
  - Asthenia [None]
  - Rash [None]
  - Bed rest [None]
